FAERS Safety Report 19217214 (Version 1)
Quarter: 2021Q2

REPORT INFORMATION
  Report Type: Spontaneous
  Country: US (occurrence: US)
  Receive Date: 20210505
  Receipt Date: 20210505
  Transmission Date: 20210717
  Serious: No
  Sender: FDA-Public Use
  Company Number: None

PATIENT
  Age: 33 Year
  Sex: Male

DRUGS (1)
  1. CEFTRIAXONE. [Suspect]
     Active Substance: CEFTRIAXONE
     Indication: SEPSIS
     Dosage: ?          OTHER FREQUENCY:X 1;?
     Route: 042
     Dates: start: 20210504, end: 20210504

REACTIONS (5)
  - Acute kidney injury [None]
  - Metabolic encephalopathy [None]
  - Erythema [None]
  - Septic shock [None]
  - Sinus tachycardia [None]

NARRATIVE: CASE EVENT DATE: 20210504
